FAERS Safety Report 7482226-6 (Version None)
Quarter: 2011Q2

REPORT INFORMATION
  Report Type: 
  Country: None (occurrence: None)
  Receive Date: 20110516
  Receipt Date: 20110506
  Transmission Date: 20111010
  Serious: No
  Sender: FDA-Public Use
  Company Number: US-PFIZER INC-2011098018

PATIENT
  Age: 72 Year
  Sex: Female

DRUGS (1)
  1. ZOLOFT [Suspect]
     Indication: STRESS
     Dosage: UNK

REACTIONS (1)
  - PRODUCT COUNTERFEIT [None]
